FAERS Safety Report 9911927 (Version 1)
Quarter: 2014Q1

REPORT INFORMATION
  Report Type: Spontaneous
  Country: US (occurrence: US)
  Receive Date: 20140219
  Receipt Date: 20140219
  Transmission Date: 20141002
  Serious: No
  Sender: FDA-Public Use
  Company Number: US-MYLANLABS-2013S1020182

PATIENT
  Age: 4 Year
  Sex: Male
  Weight: 18.14 kg

DRUGS (1)
  1. EPIPEN JR [Suspect]
     Indication: FOOD ALLERGY
     Dosage: 0.15 MG, AS NEEDED
     Route: 058

REACTIONS (1)
  - Accidental exposure to product by child [Recovered/Resolved]
